FAERS Safety Report 10360619 (Version 2)
Quarter: 2014Q3

REPORT INFORMATION
  Report Type: Spontaneous
  Country: US (occurrence: US)
  Receive Date: 20140804
  Receipt Date: 20140804
  Transmission Date: 20150326
  Serious: Yes (Hospitalization, Other)
  Sender: FDA-Public Use
  Company Number: US-009507513-2010SP012023

PATIENT
  Sex: Female
  Weight: 96.16 kg

DRUGS (7)
  1. ZOCOR [Concomitant]
     Active Substance: SIMVASTATIN
     Indication: HYPERCHOLESTEROLAEMIA
     Dosage: 40 MG, HS
     Dates: start: 2005
  2. IMPLANON [Suspect]
     Active Substance: ETONOGESTREL
     Indication: CONTRACEPTION
     Dates: start: 200901
  3. FIORICET [Concomitant]
     Active Substance: ACETAMINOPHEN\BUTALBITAL\CAFFEINE
     Indication: MIGRAINE
     Dosage: 50 MG, PRN
  4. NUVARING [Suspect]
     Active Substance: ETHINYL ESTRADIOL\ETONOGESTREL
     Indication: HORMONE THERAPY
  5. DIFLUCAN [Concomitant]
     Active Substance: FLUCONAZOLE
     Indication: NAIL INFECTION
     Dosage: UNK UNK, QW
  6. NUVARING [Suspect]
     Active Substance: ETHINYL ESTRADIOL\ETONOGESTREL
     Indication: CONTRACEPTION
     Route: 067
     Dates: start: 200712, end: 200901
  7. TOPAMAX [Concomitant]
     Active Substance: TOPIRAMATE
     Indication: MIGRAINE
     Dosage: 25 MG, HS

REACTIONS (15)
  - Dyspnoea [Unknown]
  - Thrombosis [Unknown]
  - Hyperlipidaemia [Unknown]
  - Off label use [Unknown]
  - Migraine [Unknown]
  - Limb operation [Unknown]
  - Hyperglycaemia [Unknown]
  - Weight increased [Unknown]
  - Inappropriate schedule of drug administration [Not Recovered/Not Resolved]
  - Pulmonary embolism [Recovered/Resolved]
  - Hypoaesthesia [Unknown]
  - Candida infection [Recovered/Resolved]
  - Pneumonia [Unknown]
  - Pleurisy [Recovering/Resolving]
  - Weight increased [Unknown]

NARRATIVE: CASE EVENT DATE: 200712
